FAERS Safety Report 13151727 (Version 1)
Quarter: 2017Q1

REPORT INFORMATION
  Report Type: Spontaneous
  Country: US (occurrence: US)
  Receive Date: 20170125
  Receipt Date: 20170125
  Transmission Date: 20170428
  Serious: Yes (Other)
  Sender: FDA-Public Use
  Company Number: US-JNJFOC-20170121394

PATIENT
  Sex: Female

DRUGS (1)
  1. REMICADE [Suspect]
     Active Substance: INFLIXIMAB
     Indication: CROHN^S DISEASE
     Route: 042
     Dates: start: 20140401, end: 201601

REACTIONS (6)
  - Lymphadenopathy mediastinal [Unknown]
  - Lung neoplasm malignant [Unknown]
  - Leukocytosis [Unknown]
  - Pleural effusion [Unknown]
  - Pulmonary mass [Unknown]
  - Metaplasia [Unknown]
